FAERS Safety Report 5796872-9 (Version None)
Quarter: 2008Q2

REPORT INFORMATION
  Report Type: 
  Country: None (occurrence: None)
  Receive Date: 20080618
  Receipt Date: 20071009
  Transmission Date: 20081010
  Serious: Yes (Other)
  Sender: FDA-Public Use
  Company Number: 200713577US

PATIENT
  Age: 80 Year
  Sex: Male
  Weight: 73 kg

DRUGS (23)
  1. LANTUS [Suspect]
     Indication: TYPE 2 DIABETES MELLITUS
     Dosage: 22 U QD
     Dates: end: 20070101
  2. LANTUS [Suspect]
     Indication: TYPE 2 DIABETES MELLITUS
     Dosage: 28 U
     Dates: start: 20070607
  3. OPTICLIK GREY [Suspect]
  4. FISH OIL [Concomitant]
  5. TERAZOSIN HYDROCHLORIDE (TERAZOSINE) [Concomitant]
  6. FOLIC ACID [Concomitant]
  7. ALLOPURINOL [Concomitant]
  8. POTASSIUM CHLORIDE [Concomitant]
  9. CLOPIDOGREL (PLAVIX /01220701/) [Concomitant]
  10. SPIRONOLACTONE [Concomitant]
  11. OMEPRAZOLE [Concomitant]
  12. LASIX [Concomitant]
  13. GLYBURIDE [Concomitant]
  14. SIMVASTATIN, EZETIMIBE (VYTORIN) [Concomitant]
  15. COREG [Concomitant]
  16. ASCORBIC ACID (VITAMIN C) [Concomitant]
  17. VITAMIN B NOS (VITAMIN C) [Concomitant]
  18. VITAMIN B NOS (VITAMIN B NOS) [Concomitant]
  19. ERGOCALCIFEROL (VIT D) [Concomitant]
  20. IRON [Concomitant]
  21. DOCUSATE SODIUM (STOOL SOFTENER) [Concomitant]
  22. TOCOPHERYL ACETATE (VITAMIN E) [Concomitant]
  23. PRAZOSIN HCL [Concomitant]

REACTIONS (3)
  - BLOOD GLUCOSE [None]
  - BLOOD GLUCOSE INCREASED [None]
  - HYPOGLYCAEMIC UNCONSCIOUSNESS [None]
